FAERS Safety Report 11145686 (Version 1)
Quarter: 2015Q2

REPORT INFORMATION
  Report Type: Spontaneous
  Country: CH (occurrence: CH)
  Receive Date: 20150528
  Receipt Date: 20150528
  Transmission Date: 20150821
  Serious: Yes (Hospitalization)
  Sender: FDA-Public Use
  Company Number: CH-PFIZER INC-2015180383

PATIENT
  Age: 86 Year
  Sex: Female

DRUGS (12)
  1. METAMUCIL [Concomitant]
     Active Substance: PLANTAGO SEED
     Dosage: UNK
  2. ZESTORETIC [Suspect]
     Active Substance: HYDROCHLOROTHIAZIDE\LISINOPRIL
     Dosage: 1 DF (12.5MG/20MG), 2X/DAY
  3. NOVALGIN [Concomitant]
     Active Substance: METAMIZOLE SODIUM
     Dosage: UNK
  4. PANTOZOL [Suspect]
     Active Substance: PANTOPRAZOLE SODIUM
     Dosage: 40 MG, 1X/DAY
  5. BELOC /00376902/ [Concomitant]
     Dosage: UNK
  6. PADMA [Concomitant]
     Dosage: UNK
  7. TOREM /01036501/ [Suspect]
     Active Substance: TORSEMIDE
     Dosage: 10 MG, 1X/DAY
  8. NORVASC [Concomitant]
     Active Substance: AMLODIPINE BESYLATE
     Dosage: UNK
  9. MAGNESIOCARD GRAPEFRUIT [Concomitant]
     Dosage: UNK
  10. PLAVIX [Concomitant]
     Active Substance: CLOPIDOGREL BISULFATE
     Dosage: UNK
  11. SORTIS [Concomitant]
     Active Substance: ATORVASTATIN
     Dosage: UNK
  12. ASPIRIN CARDIO [Concomitant]
     Active Substance: ASPIRIN
     Dosage: UNK

REACTIONS (5)
  - Hypokalaemia [Recovered/Resolved]
  - Urosepsis [Recovered/Resolved]
  - Hypomagnesaemia [Unknown]
  - Hypophosphataemia [Recovered/Resolved]
  - Hyponatraemia [Recovered/Resolved]

NARRATIVE: CASE EVENT DATE: 201502
